FAERS Safety Report 23481303 (Version 2)
Quarter: 2024Q1

REPORT INFORMATION
  Report Type: Spontaneous
  Country: BG (occurrence: BG)
  Receive Date: 20240205
  Receipt Date: 20240311
  Transmission Date: 20240410
  Serious: Yes (Hospitalization, Other)
  Sender: FDA-Public Use
  Company Number: BG-BRISTOL-MYERS SQUIBB COMPANY-2024-017474

PATIENT
  Age: 70 Year
  Sex: Male

DRUGS (2)
  1. OPDIVO [Suspect]
     Active Substance: NIVOLUMAB
     Indication: Renal cell carcinoma
     Route: 042
     Dates: start: 20231220
  2. YERVOY [Suspect]
     Active Substance: IPILIMUMAB
     Indication: Renal cell carcinoma
     Route: 042
     Dates: start: 20231220

REACTIONS (3)
  - Atrioventricular block [Unknown]
  - Myasthenia gravis [Unknown]
  - Myositis [Unknown]

NARRATIVE: CASE EVENT DATE: 20240115
